FAERS Safety Report 5924070-4 (Version None)
Quarter: 2008Q4

REPORT INFORMATION
  Report Type: 
  Country: None (occurrence: None)
  Receive Date: 20081020
  Receipt Date: 20081014
  Transmission Date: 20090506
  Serious: Yes (Hospitalization)
  Sender: FDA-Public Use
  Company Number: US-ASTRAZENECA-2008UW22626

PATIENT
  Age: 75 Year
  Sex: Female

DRUGS (8)
  1. ARIMIDEX [Suspect]
     Route: 048
     Dates: start: 20040101
  2. ENTERIC COATED ACETYLSALICYLIC ACID [Concomitant]
  3. QUINAPRIL [Concomitant]
  4. FUROSEMIDE [Concomitant]
  5. COMBIVENT [Concomitant]
  6. PULMICORT-100 [Concomitant]
  7. CALCIUM [Concomitant]
  8. FLAX SEED OIL [Concomitant]

REACTIONS (5)
  - ARTHRALGIA [None]
  - ARTHRITIS [None]
  - CARDIAC DISORDER [None]
  - NEUROPATHY PERIPHERAL [None]
  - PAIN IN EXTREMITY [None]
